FAERS Safety Report 11828770 (Version 2)
Quarter: 2015Q4

REPORT INFORMATION
  Report Type: Spontaneous
  Country: JP (occurrence: JP)
  Receive Date: 20151211
  Receipt Date: 20151221
  Transmission Date: 20160305
  Serious: Yes (Hospitalization, Other)
  Sender: FDA-Public Use
  Company Number: JP-BRISTOL-MYERS SQUIBB COMPANY-BMS-2015-085258

PATIENT
  Age: 60 Year
  Sex: Male

DRUGS (2)
  1. DAKLINZA [Suspect]
     Active Substance: DACLATASVIR
     Indication: VIRAL LOAD
     Dosage: 60 MG, QD
     Route: 048
     Dates: start: 20150306, end: 20150322
  2. SUNVEPRA [Suspect]
     Active Substance: ASUNAPREVIR
     Indication: VIRAL LOAD
     Dosage: 100 MG, BID
     Route: 048
     Dates: start: 20150306, end: 20150322

REACTIONS (1)
  - Gastric varices haemorrhage [Recovered/Resolved]

NARRATIVE: CASE EVENT DATE: 20150322
